FAERS Safety Report 8967744 (Version 1)
Quarter: 2012Q4

REPORT INFORMATION
  Report Type: Spontaneous
  Country: US (occurrence: None)
  Receive Date: 20121207
  Receipt Date: 20121207
  Transmission Date: 20130627
  Serious: Yes (Hospitalization, Other)
  Sender: FDA-Public Use
  Company Number: 2012P1065795

PATIENT
  Age: 92 Year
  Sex: Female

DRUGS (4)
  1. AMIODARONE [Suspect]
     Indication: ATRIAL FIBRILLATION PAROXYSMAL
  2. VERAPAMIL [Concomitant]
  3. LISINOPRIL [Concomitant]
  4. WARFARIN [Concomitant]

REACTIONS (8)
  - Acute respiratory distress syndrome [None]
  - Abdominal pain [None]
  - Fatigue [None]
  - Chest discomfort [None]
  - Blood pressure diastolic decreased [None]
  - Heart rate decreased [None]
  - Pulmonary toxicity [None]
  - Toxicity to various agents [None]
